FAERS Safety Report 8447282-7 (Version None)
Quarter: 2012Q2

REPORT INFORMATION
  Report Type: 
  Country: None (occurrence: None)
  Receive Date: 20120619
  Receipt Date: 20120611
  Transmission Date: 20120825
  Serious: Yes (Other)
  Sender: FDA-Public Use
  Company Number: PHHY2012MX051874

PATIENT
  Sex: Female

DRUGS (2)
  1. TRIPLEFLEX [Concomitant]
     Dosage: UNK UKN, UNK
  2. ZOLEDRONOC ACID [Suspect]
     Indication: OSTEOPOROSIS
     Dosage: 5 MG PER YEAR
     Route: 042
     Dates: start: 20110601

REACTIONS (9)
  - BURNING SENSATION [None]
  - DECREASED APPETITE [None]
  - MUCOUS STOOLS [None]
  - MELAENA [None]
  - BONE FISSURE [None]
  - INFLAMMATION [None]
  - FALL [None]
  - ABDOMINAL DISTENSION [None]
  - ABNORMAL FAECES [None]
